FAERS Safety Report 4656776-1 (Version None)
Quarter: 2005Q2

REPORT INFORMATION
  Report Type: 
  Country: None (occurrence: None)
  Receive Date: 20050506
  Receipt Date: 20050426
  Transmission Date: 20051028
  Serious: No
  Sender: FDA-Public Use
  Company Number: 2005SE02516

PATIENT
  Age: 40 Year
  Sex: Male

DRUGS (2)
  1. QUETIAPINE [Suspect]
     Indication: SCHIZOPHRENIA
     Dosage: 400 MG DAILY PO
     Route: 048
     Dates: start: 20041006
  2. QUETIAPINE [Suspect]
     Indication: SCHIZOPHRENIA
     Dosage: 600 MG DAILY PO
     Route: 048
     Dates: end: 20050404

REACTIONS (2)
  - CONDITION AGGRAVATED [None]
  - SCHIZOPHRENIA [None]
